FAERS Safety Report 25198814 (Version 1)
Quarter: 2025Q2

REPORT INFORMATION
  Report Type: Report from Study
  Country: US (occurrence: US)
  Receive Date: 20250415
  Receipt Date: 20250415
  Transmission Date: 20250717
  Serious: No
  Sender: SUNOVION
  Company Number: US-SUMITOMO PHARMA SWITZERLAND GMBH-2025SPA003301

PATIENT

DRUGS (1)
  1. ORGOVYX [Suspect]
     Active Substance: RELUGOLIX
     Indication: Prostate cancer
     Dosage: 120 MG, QD
     Route: 048
     Dates: start: 20250225

REACTIONS (6)
  - Temporomandibular pain and dysfunction syndrome [Unknown]
  - Mastication disorder [Unknown]
  - Somnolence [Unknown]
  - Myalgia [Unknown]
  - Fatigue [Unknown]
  - Incorrect dose administered [Unknown]
